FAERS Safety Report 21392997 (Version 1)
Quarter: 2022Q3

REPORT INFORMATION
  Report Type: Report from Study
  Country: US (occurrence: US)
  Receive Date: 20220929
  Receipt Date: 20220929
  Transmission Date: 20221026
  Serious: Yes (Other)
  Sender: FDA-Public Use
  Company Number: US-ABBVIE-4132601

PATIENT
  Sex: Male

DRUGS (5)
  1. HUMIRA [Suspect]
     Active Substance: ADALIMUMAB
     Indication: Crohn^s disease
     Route: 058
  2. HUMIRA [Suspect]
     Active Substance: ADALIMUMAB
     Indication: Colitis ulcerative
     Route: 058
  3. Moderna [Concomitant]
     Indication: COVID-19 immunisation
     Dosage: ONCE?1ST DOSE
     Route: 030
     Dates: start: 20210203, end: 20210203
  4. Moderna [Concomitant]
     Indication: COVID-19 immunisation
     Dosage: ONCE?2ND DOSE
     Route: 030
     Dates: start: 20210303, end: 20210303
  5. Moderna [Concomitant]
     Indication: COVID-19 immunisation
     Dosage: ONCE? BOOSTER VACCINE
     Dates: start: 20210921, end: 20210921

REACTIONS (4)
  - Cataract [Not Recovered/Not Resolved]
  - COVID-19 [Recovered/Resolved]
  - Therapeutic product effect decreased [Unknown]
  - Pain [Unknown]

NARRATIVE: CASE EVENT DATE: 20220101
